FAERS Safety Report 16353117 (Version 1)
Quarter: 2019Q2

REPORT INFORMATION
  Report Type: Spontaneous
  Country: US (occurrence: US)
  Receive Date: 20190524
  Receipt Date: 20190524
  Transmission Date: 20190711
  Serious: No
  Sender: FDA-Public Use
  Company Number: US-PFIZER INC-2019217024

PATIENT
  Sex: Male

DRUGS (1)
  1. DEPO-TESTOSTERONE [Suspect]
     Active Substance: TESTOSTERONE CYPIONATE
     Dosage: 2 MG/ML, UNK, (TAKES 2MG (ML) EVERY TWO WEEKS)

REACTIONS (1)
  - Therapeutic product effect incomplete [Unknown]
